FAERS Safety Report 16762973 (Version 1)
Quarter: 2019Q3

REPORT INFORMATION
  Report Type: Spontaneous
  Country: SE (occurrence: SE)
  Receive Date: 20190902
  Receipt Date: 20190902
  Transmission Date: 20191005
  Serious: Yes (Other)
  Sender: FDA-Public Use
  Company Number: SE-AMGEN-SWESP2019137981

PATIENT
  Age: 81 Year
  Sex: Male

DRUGS (10)
  1. PROLIA [Suspect]
     Active Substance: DENOSUMAB
     Indication: PROSTATE CANCER METASTATIC
     Dosage: UNK
     Route: 048
  2. ZOLADEX [Concomitant]
     Active Substance: GOSERELIN ACETATE
  3. OXASCAND [Concomitant]
     Active Substance: OXAZEPAM
  4. AMOXICILLIN TRIHYDRATE [Concomitant]
     Active Substance: AMOXICILLIN
     Dosage: UNK
  5. FENTANYL. [Concomitant]
     Active Substance: FENTANYL
  6. FOLACIN [Concomitant]
  7. METADON [Concomitant]
     Active Substance: METHADONE HYDROCHLORIDE
  8. DEXAMETASON [Concomitant]
     Active Substance: DEXAMETHASONE
  9. BISOPROLOL [Concomitant]
     Active Substance: BISOPROLOL
  10. ELIQUIS [Concomitant]
     Active Substance: APIXABAN

REACTIONS (1)
  - Osteonecrosis [Not Recovered/Not Resolved]

NARRATIVE: CASE EVENT DATE: 20190625
